FAERS Safety Report 12906977 (Version 1)
Quarter: 2016Q4

REPORT INFORMATION
  Report Type: Spontaneous
  Country: US (occurrence: US)
  Receive Date: 20161103
  Receipt Date: 20161103
  Transmission Date: 20170207
  Serious: Yes (Other)
  Sender: FDA-Public Use
  Company Number: US-BAYER-2016-205524

PATIENT

DRUGS (1)
  1. CIPRO [Suspect]
     Active Substance: CIPROFLOXACIN HYDROCHLORIDE
     Dosage: UNK

REACTIONS (6)
  - Hypoaesthesia [None]
  - Disturbance in attention [None]
  - Angina pectoris [None]
  - Weight decreased [None]
  - Gait disturbance [None]
  - Pain [None]

NARRATIVE: CASE EVENT DATE: 20081006
